FAERS Safety Report 8830322 (Version 1)
Quarter: 2012Q4

REPORT INFORMATION
  Report Type: 
  Country: AU (occurrence: AU)
  Receive Date: 20121009
  Receipt Date: 20121009
  Transmission Date: 20130627
  Serious: No
  Sender: FDA-Public Use
  Company Number: AU-009507513-1209AUS010638

PATIENT
  Sex: Female

DRUGS (1)
  1. ELOCON [Suspect]

REACTIONS (2)
  - Incorrect route of drug administration [Unknown]
  - No adverse event [Unknown]
